FAERS Safety Report 7370331-4 (Version None)
Quarter: 2011Q1

REPORT INFORMATION
  Report Type: 
  Country: None (occurrence: None)
  Receive Date: 20110323
  Receipt Date: 20110317
  Transmission Date: 20110831
  Serious: Yes (Death)
  Sender: FDA-Public Use
  Company Number: PH-NAPPMUNDI-MAG-2004-0001366

PATIENT

DRUGS (6)
  1. IRON W/FOLIC ACID [Concomitant]
     Dosage: UNK
     Dates: start: 20040801
  2. OXYCODONE HYDROCHLORIDE [Suspect]
     Indication: PRODUCT USED FOR UNKNOWN INDICATION
     Dosage: UNK
     Dates: start: 20040927, end: 20041003
  3. TOLINIC [Concomitant]
     Dosage: UNK
     Dates: start: 20041111, end: 20041116
  4. ALPRAZOLAM [Concomitant]
     Dosage: UNK
     Dates: start: 20041111
  5. ARCOXIA [Concomitant]
     Dosage: UNK
     Dates: start: 20040801
  6. FLUORO URACIL [Concomitant]
     Dosage: UNK
     Dates: start: 20041111, end: 20041116

REACTIONS (3)
  - SOMNOLENCE [None]
  - DIZZINESS [None]
  - DEATH [None]
